FAERS Safety Report 8112377-4 (Version None)
Quarter: 2011Q4

REPORT INFORMATION
  Report Type: 
  Country: None (occurrence: None)
  Receive Date: 20111223
  Receipt Date: 20110206
  Transmission Date: 20120403
  Serious: Yes (Other)
  Sender: FDA-Public Use
  Company Number: PHHY2011US04869

PATIENT
  Age: 46 Year
  Sex: Female
  Weight: 55.3 kg

DRUGS (6)
  1. NORTRIPTYLINE HCL [Concomitant]
  2. CLONAZEPAM [Concomitant]
  3. ENBREL [Concomitant]
  4. METHOTREXATE [Concomitant]
  5. CLOZARIL [Suspect]
     Indication: MENTAL DISORDER
     Dosage: 350 MG, QD, ORAL  : ORAL
     Route: 048
     Dates: end: 20110118
  6. PROPRANOLOL [Concomitant]

REACTIONS (3)
  - RED BLOOD CELL COUNT DECREASED [None]
  - LEUKOPENIA [None]
  - NEUTROPENIA [None]
